FAERS Safety Report 4892146-9 (Version None)
Quarter: 2006Q1

REPORT INFORMATION
  Report Type: 
  Country: None (occurrence: None)
  Receive Date: 20060126
  Receipt Date: 20051010
  Transmission Date: 20060701
  Serious: Yes (Death)
  Sender: FDA-Public Use
  Company Number: US-BRISTOL-MYERS SQUIBB COMPANY-13139712

PATIENT
  Age: 82 Year
  Sex: Male

DRUGS (5)
  1. ENKAID [Suspect]
     Indication: VENTRICULAR TACHYCARDIA
     Route: 048
     Dates: start: 19960101, end: 20050101
  2. ALTACE [Concomitant]
  3. LANOXIN [Concomitant]
  4. LIPITOR [Concomitant]
  5. TIMOLOL MALEATE [Concomitant]
     Route: 047

REACTIONS (1)
  - DEATH [None]
